FAERS Safety Report 18470704 (Version 3)
Quarter: 2021Q1

REPORT INFORMATION
  Report Type: Report from Study
  Country: JP (occurrence: JP)
  Receive Date: 20201106
  Receipt Date: 20210330
  Transmission Date: 20210419
  Serious: Yes (Hospitalization, Disabling, Other)
  Sender: FDA-Public Use
  Company Number: JP-ADVANZ PHARMA-202010009825

PATIENT

DRUGS (70)
  1. ZONISAMIDE. [Suspect]
     Active Substance: ZONISAMIDE
     Dosage: 250 MG, QD, TABLET, EXCEGRAN
     Route: 048
     Dates: start: 20200303
  2. FYCOMPA [Suspect]
     Active Substance: PERAMPANEL
     Dosage: 5 MG, QD
     Route: 048
     Dates: start: 20180910
  3. RIVOTRIL [Suspect]
     Active Substance: CLONAZEPAM
     Dosage: 1.5 MG, QD
     Route: 048
     Dates: start: 20190125
  4. RIVOTRIL [Suspect]
     Active Substance: CLONAZEPAM
     Dosage: 1.5 MG, QD
     Route: 048
     Dates: start: 20190520
  5. RIVOTRIL [Suspect]
     Active Substance: CLONAZEPAM
     Dosage: 3 MG, QD
     Route: 048
     Dates: start: 20191212
  6. VIMPAT [Suspect]
     Active Substance: LACOSAMIDE
     Dosage: 250 MG, QD
     Route: 048
     Dates: start: 20190222
  7. LAC?B [Concomitant]
     Active Substance: BIFIDOBACTERIUM SPP.
     Route: 065
  8. MOVICOL [Concomitant]
     Active Substance: POLYETHYLENE GLYCOL 3350\POTASSIUM CHLORIDE\SODIUM BICARBONATE\SODIUM CHLORIDE
     Route: 065
  9. MUCODYNE [Concomitant]
     Active Substance: CARBOCYSTEINE
     Route: 065
  10. FYCOMPA [Suspect]
     Active Substance: PERAMPANEL
     Dosage: 4 MG, QD
     Route: 048
     Dates: start: 20190604
  11. RIVOTRIL [Suspect]
     Active Substance: CLONAZEPAM
     Indication: PARTIAL SEIZURES
     Dosage: 2.5 MG, QD
     Route: 048
  12. VIMPAT [Suspect]
     Active Substance: LACOSAMIDE
     Indication: EPILEPSY
     Dosage: 100 MG, QD
     Route: 048
     Dates: start: 20181226
  13. VIMPAT [Suspect]
     Active Substance: LACOSAMIDE
     Dosage: 300 MG, QD
     Route: 048
     Dates: start: 20190308
  14. VIMPAT [Suspect]
     Active Substance: LACOSAMIDE
     Dosage: 400 MG, QD
     Route: 048
     Dates: start: 20190405
  15. WAKOBITAL [Concomitant]
     Indication: PARTIAL SEIZURES
     Dosage: UNK
     Route: 065
  16. WAKOBITAL [Concomitant]
     Indication: EPILEPSY
     Dosage: UNK
  17. MIDAFRESA [Concomitant]
     Indication: EPILEPSY
     Dosage: UNK
  18. FYCOMPA [Suspect]
     Active Substance: PERAMPANEL
     Indication: EPILEPSY
     Dosage: 2 MG, QD
     Route: 048
     Dates: start: 20180724
  19. RIVOTRIL [Suspect]
     Active Substance: CLONAZEPAM
     Dosage: 1 MG, QD
     Route: 048
     Dates: start: 20190419
  20. RIVOTRIL [Suspect]
     Active Substance: CLONAZEPAM
     Dosage: 3 MG, QD
     Route: 048
     Dates: start: 20190712
  21. RIVOTRIL [Suspect]
     Active Substance: CLONAZEPAM
     Dosage: 4 MG, QD
     Route: 048
     Dates: start: 20200326
  22. DAIKENCHUTO [Concomitant]
     Active Substance: HERBALS
     Dosage: UNK
     Route: 065
  23. TRICLORY [Concomitant]
     Route: 065
  24. UNASYN [Concomitant]
     Active Substance: AMPICILLIN SODIUM\SULBACTAM SODIUM
     Indication: EPILEPSY
     Dosage: UNK
     Route: 065
     Dates: start: 20190402, end: 20190410
  25. ZONISAMIDE. [Suspect]
     Active Substance: ZONISAMIDE
     Indication: EPILEPSY
     Dosage: 255 MG, QD, TABLET, EXCEGRAN
     Route: 048
     Dates: start: 20190717
  26. ZONISAMIDE. [Suspect]
     Active Substance: ZONISAMIDE
     Dosage: 400 MG, QD, TABLET, EXCEGRAN
     Route: 048
     Dates: start: 20200425
  27. RIVOTRIL [Suspect]
     Active Substance: CLONAZEPAM
     Dosage: 2 MG, QD
     Route: 048
     Dates: start: 20190614
  28. CERCINE [Concomitant]
     Active Substance: DIAZEPAM
     Indication: EPILEPSY
  29. UNASYN [Concomitant]
     Active Substance: AMPICILLIN SODIUM\SULBACTAM SODIUM
     Indication: PARTIAL SEIZURES
     Dosage: UNK
     Route: 065
  30. RIVOTRIL [Suspect]
     Active Substance: CLONAZEPAM
     Dosage: 5 MG, QD
     Route: 048
     Dates: start: 20200401
  31. VIMPAT [Suspect]
     Active Substance: LACOSAMIDE
     Dosage: 200 MG, QD
     Route: 048
     Dates: start: 20190208
  32. TAMIFLU [Concomitant]
     Active Substance: OSELTAMIVIR PHOSPHATE
     Dosage: UNK
     Route: 065
  33. FYCOMPA [Suspect]
     Active Substance: PERAMPANEL
     Indication: PARTIAL SEIZURES
     Dosage: 4 MG, QD
     Route: 048
     Dates: start: 20180807
  34. FYCOMPA [Suspect]
     Active Substance: PERAMPANEL
     Dosage: 6 MG, QD
     Route: 048
     Dates: start: 20190906
  35. INOVELON [Suspect]
     Active Substance: RUFINAMIDE
     Dosage: 1800 MG, QD
     Route: 048
     Dates: start: 20180718, end: 202005
  36. PHENOBAL [Suspect]
     Active Substance: PHENOBARBITAL
     Indication: PARTIAL SEIZURES
     Dosage: 120 MG, QD
     Route: 048
  37. PHENOBAL [Suspect]
     Active Substance: PHENOBARBITAL
     Dosage: 180 MG, QD
     Route: 048
     Dates: start: 20200413
  38. RIVOTRIL [Suspect]
     Active Substance: CLONAZEPAM
     Indication: EPILEPSY
     Dosage: 2 MG, QD
     Route: 048
     Dates: start: 20190111
  39. RIVOTRIL [Suspect]
     Active Substance: CLONAZEPAM
     Dosage: 1 MG, QD
     Route: 048
     Dates: start: 20191007
  40. RIVOTRIL [Suspect]
     Active Substance: CLONAZEPAM
     Dosage: 1.5 MG, QD
     Route: 048
     Dates: start: 20191101
  41. VIMPAT [Suspect]
     Active Substance: LACOSAMIDE
     Dosage: 350 MG, QD
     Route: 048
     Dates: start: 20190323
  42. VIMPAT [Suspect]
     Active Substance: LACOSAMIDE
     Dosage: 300 MG, QD
     Route: 048
     Dates: start: 20190716
  43. MALT EXTRACT [Concomitant]
     Route: 065
  44. ESCRE [Concomitant]
     Active Substance: CHLORAL HYDRATE
     Indication: PARTIAL SEIZURES
     Route: 065
  45. DIAPP [Concomitant]
     Active Substance: DIAZEPAM
     Indication: EPILEPSY
     Route: 065
  46. DIAPP [Concomitant]
     Active Substance: DIAZEPAM
     Indication: PARTIAL SEIZURES
     Dosage: UNK
  47. MIDAFRESA [Concomitant]
     Indication: PARTIAL SEIZURES
     Dosage: UNK
     Route: 065
     Dates: start: 20200402, end: 20200410
  48. FYCOMPA [Suspect]
     Active Substance: PERAMPANEL
     Dosage: 6 MG, QD
     Route: 048
     Dates: start: 20180821
  49. PHENOBAL [Suspect]
     Active Substance: PHENOBARBITAL
     Indication: EPILEPSY
     Dosage: 150 MG, QD
     Route: 048
     Dates: start: 20200303
  50. RIVOTRIL [Suspect]
     Active Substance: CLONAZEPAM
     Dosage: 2.5 MG, QD
     Route: 048
     Dates: start: 20190628
  51. RIVOTRIL [Suspect]
     Active Substance: CLONAZEPAM
     Dosage: 2 MG, QD
     Route: 048
     Dates: start: 20190919
  52. RIVOTRIL [Suspect]
     Active Substance: CLONAZEPAM
     Dosage: 2 MG, QD
     Route: 048
     Dates: start: 20191115
  53. VIMPAT [Suspect]
     Active Substance: LACOSAMIDE
     Indication: PARTIAL SEIZURES
     Dosage: 70 MG, QD
     Route: 048
     Dates: start: 20181217
  54. VIMPAT [Suspect]
     Active Substance: LACOSAMIDE
     Dosage: 250 MG, QD
     Route: 048
     Dates: start: 20190713
  55. ESCRE [Concomitant]
     Active Substance: CHLORAL HYDRATE
     Indication: EPILEPSY
     Dosage: UNK
  56. PULLSMALIN R [Concomitant]
     Route: 065
  57. ANHIBA [Concomitant]
     Active Substance: ACETAMINOPHEN
     Route: 065
  58. CERCINE [Concomitant]
     Active Substance: DIAZEPAM
     Indication: PARTIAL SEIZURES
     Dosage: UNK
     Route: 065
     Dates: start: 20200410, end: 20200410
  59. ZONISAMIDE. [Suspect]
     Active Substance: ZONISAMIDE
     Indication: PARTIAL SEIZURES
     Dosage: 250 MG, QD, TABLET, EXCEGRAN
     Route: 048
  60. ZONISAMIDE. [Suspect]
     Active Substance: ZONISAMIDE
     Dosage: 350 MG, QD, TABLET, EXCEGRAN
     Route: 048
     Dates: start: 20200413
  61. FYCOMPA [Suspect]
     Active Substance: PERAMPANEL
     Dosage: 3 MG, QD
     Route: 048
     Dates: start: 20200208
  62. INOVELON [Suspect]
     Active Substance: RUFINAMIDE
     Indication: PARTIAL SEIZURES
     Dosage: 1600 MG, QD
     Route: 048
  63. INOVELON [Suspect]
     Active Substance: RUFINAMIDE
     Dosage: 1700 MG, QD
     Route: 048
     Dates: start: 20180627
  64. RIVOTRIL [Suspect]
     Active Substance: CLONAZEPAM
     Dosage: 2.5 MG, QD
     Route: 048
     Dates: start: 20191202
  65. RIVOTRIL [Suspect]
     Active Substance: CLONAZEPAM
     Dosage: 6 MG, QD
     Route: 048
     Dates: start: 20200618
  66. VIMPAT [Suspect]
     Active Substance: LACOSAMIDE
     Dosage: 150 MG, QD
     Route: 048
     Dates: start: 20190125
  67. VIMPAT [Suspect]
     Active Substance: LACOSAMIDE
     Dosage: 300 MG, QD
     Route: 048
     Dates: start: 20190629
  68. MAGNESIUM OXIDE. [Concomitant]
     Active Substance: MAGNESIUM OXIDE
     Dosage: UNK
     Route: 065
  69. LAXOBERON [Concomitant]
     Active Substance: SODIUM PICOSULFATE
     Route: 065
  70. SUCRALFATE HYDRATE [Concomitant]
     Active Substance: SUCRALFATE
     Route: 065

REACTIONS (2)
  - Status epilepticus [Recovered/Resolved]
  - Dysphagia [Not Recovered/Not Resolved]

NARRATIVE: CASE EVENT DATE: 202002
